FAERS Safety Report 7202918-3 (Version None)
Quarter: 2010Q4

REPORT INFORMATION
  Report Type: 
  Country: None (occurrence: None)
  Receive Date: 20101229
  Receipt Date: 20101220
  Transmission Date: 20110411
  Serious: Yes (Other)
  Sender: FDA-Public Use
  Company Number: NL-TEVA-261014ISR

PATIENT
  Age: 69 Year
  Sex: Female

DRUGS (8)
  1. MICONAZOLE [Suspect]
     Indication: FUNGAL INFECTION
     Dosage: 20MG/G
  2. ACENOCOUMAROL [Interacting]
  3. METFORMIN [Concomitant]
  4. FOSINOPRIL SODIUM [Concomitant]
  5. CHLORTHALIDONE [Concomitant]
  6. METOPROLOL [Concomitant]
  7. GLIMEPIRIDE [Concomitant]
  8. BISACODYL [Concomitant]

REACTIONS (2)
  - COAGULATION TEST ABNORMAL [None]
  - DRUG INTERACTION [None]
